FAERS Safety Report 22259038 (Version 2)
Quarter: 2023Q2

REPORT INFORMATION
  Report Type: Spontaneous
  Country: US (occurrence: US)
  Receive Date: 20230427
  Receipt Date: 20230503
  Transmission Date: 20230722
  Serious: No
  Sender: FDA-Public Use
  Company Number: US-PFIZER INC-202300162269

PATIENT
  Age: 14 Year
  Sex: Male
  Weight: 54.43 kg

DRUGS (2)
  1. GENOTROPIN [Suspect]
     Active Substance: SOMATROPIN
     Indication: Blood growth hormone
     Dosage: UNK, ALTERNATE DAY (SWITCHED 2.6 ONE DAY, 2.8 THE NEXT DAY)
  2. GENOTROPIN [Suspect]
     Active Substance: SOMATROPIN
     Indication: Growth disorder

REACTIONS (4)
  - Drug dose omission by device [Unknown]
  - Needle issue [Unknown]
  - Device breakage [Unknown]
  - Device leakage [Unknown]
